FAERS Safety Report 8862929 (Version 1)
Quarter: 2012Q4

REPORT INFORMATION
  Report Type: 
  Country: US (occurrence: US)
  Receive Date: 20121026
  Receipt Date: 20121026
  Transmission Date: 20130627
  Serious: Yes (Hospitalization)
  Sender: FDA-Public Use
  Company Number: PHEH2012US020907

PATIENT
  Age: 62 Year
  Sex: Male

DRUGS (2)
  1. MYFORTIC [Suspect]
     Indication: PROPHYLAXIS AGAINST TRANSPLANT REJECTION
     Dosage: 360 mg,
     Route: 048
  2. TACROLIMUS [Concomitant]
     Indication: PROPHYLAXIS AGAINST TRANSPLANT REJECTION
     Dosage: 1 mg, BID
     Route: 048

REACTIONS (2)
  - Renal failure acute [Recovering/Resolving]
  - Polyomavirus-associated nephropathy [Recovering/Resolving]
